FAERS Safety Report 5056550-0 (Version None)
Quarter: 2006Q3

REPORT INFORMATION
  Report Type: 
  Country: None (occurrence: None)
  Receive Date: 20060720
  Receipt Date: 20060713
  Transmission Date: 20061208
  Serious: Yes (Hospitalization)
  Sender: FDA-Public Use
  Company Number: AU-BOEHRINGER INGELHEIM PHARMACEUTICALS, INC.-2006-BP-08111AU

PATIENT
  Age: 65 Year
  Sex: Male

DRUGS (1)
  1. ASASANTIN SR (CAPSULE, LONG ACTING) [Suspect]
     Indication: TRANSIENT ISCHAEMIC ATTACK
     Route: 048

REACTIONS (1)
  - MYOCARDIAL INFARCTION [None]
